FAERS Safety Report 18303839 (Version 1)
Quarter: 2020Q3

REPORT INFORMATION
  Report Type: Spontaneous
  Country: US (occurrence: US)
  Receive Date: 20200924
  Receipt Date: 20200924
  Transmission Date: 20201103
  Serious: No
  Sender: FDA-Public Use
  Company Number: US-TARO-2020TAR00055

PATIENT

DRUGS (1)
  1. DESONIDE OINTMENT USP 0.05% [Suspect]
     Active Substance: DESONIDE
     Indication: RASH
     Dosage: UNK, 60G TUBE (1 APPLICATION), APPLY SPARINGLY, AS NEEDED
     Route: 061
     Dates: start: 20200103, end: 20200104

REACTIONS (2)
  - Product quality issue [Unknown]
  - Rash [Recovering/Resolving]

NARRATIVE: CASE EVENT DATE: 20200103
